FAERS Safety Report 8128366-X (Version None)
Quarter: 2011Q4

REPORT INFORMATION
  Report Type: 
  Country: None (occurrence: None)
  Receive Date: 20111227
  Receipt Date: 20111114
  Transmission Date: 20120403
  Serious: No
  Sender: FDA-Public Use
  Company Number: PHEH2011US07433

PATIENT
  Age: 41 Year
  Sex: Female
  Weight: 141.9 kg

DRUGS (7)
  1. NEURONTIN [Concomitant]
  2. TNORMIN (ATENOLOL) [Concomitant]
  3. PRILOSEC [Concomitant]
  4. BETA BLOCKING AGENTS (NO INGREDIENTS/SUBSTANCES) [Concomitant]
  5. GILENYA [Suspect]
     Indication: MULTIPLE SCLEROSIS
     Dosage: 0.5 MG, QD, ORAL
     Route: 048
     Dates: start: 20111011, end: 20111026
  6. DIGESTIVE ENZYMES (BETAINE HYDROCHLORIDE, BROMELAINS, CELLULASE, PANCR [Concomitant]
  7. MAXZIDE [Concomitant]

REACTIONS (10)
  - HEADACHE [None]
  - COUGH [None]
  - MICTURITION URGENCY [None]
  - DYSPNOEA EXERTIONAL [None]
  - PYREXIA [None]
  - GAIT DISTURBANCE [None]
  - INSOMNIA [None]
  - BACK PAIN [None]
  - POLLAKIURIA [None]
  - BLOOD PRESSURE INCREASED [None]
